FAERS Safety Report 10675951 (Version 2)
Quarter: 2015Q1

REPORT INFORMATION
  Report Type: Report from Study
  Country: FR (occurrence: FR)
  Receive Date: 20141225
  Receipt Date: 20150212
  Transmission Date: 20150720
  Serious: Yes (Death, Other)
  Sender: FDA-Public Use
  Company Number: FR-ROCHE-1513267

PATIENT
  Age: 69 Year
  Sex: Male
  Weight: 72 kg

DRUGS (3)
  1. BEVACIZUMAB [Suspect]
     Active Substance: BEVACIZUMAB
     Indication: COLON CANCER METASTATIC
     Dosage: CUMULATIVE DOSE BEFORE SAE OF 1725 MG
     Route: 013
     Dates: start: 20140310
  2. IRINOTECAN [Suspect]
     Active Substance: IRINOTECAN
     Indication: COLON CANCER METASTATIC
     Dosage: CUMULATIVE DOSE BEFORE SAE OF 1150 MG
     Route: 051
     Dates: start: 20140310
  3. CAPECITABINE. [Suspect]
     Active Substance: CAPECITABINE
     Indication: COLON CANCER METASTATIC
     Dosage: CUMULATIVE DOSE BEFORE SAE OF 145600 MG
     Route: 048
     Dates: start: 20140310

REACTIONS (2)
  - Disease progression [Fatal]
  - Pelvic venous thrombosis [Recovered/Resolved]

NARRATIVE: CASE EVENT DATE: 20140325
